FAERS Safety Report 9733974 (Version 2)
Quarter: 2013Q4

REPORT INFORMATION
  Report Type: Report from Study
  Country: JP (occurrence: JP)
  Receive Date: 20131205
  Receipt Date: 20131205
  Transmission Date: 20140711
  Serious: Yes (Death, Hospitalization, Disabling)
  Sender: FDA-Public Use
  Company Number: JP-SA-2013SA098151

PATIENT
  Age: 24 Month
  Sex: Male
  Weight: 12 kg

DRUGS (14)
  1. EVOLTRA [Suspect]
     Indication: ACUTE LYMPHOCYTIC LEUKAEMIA RECURRENT
     Route: 042
     Dates: start: 20130926, end: 20130930
  2. EVOLTRA [Suspect]
     Indication: B-CELL LYMPHOMA
     Route: 042
     Dates: start: 20130926, end: 20130930
  3. EVOLTRA [Suspect]
     Indication: ACUTE LYMPHOCYTIC LEUKAEMIA RECURRENT
     Dosage: 38MG/M2/DAY(DAY1-5, EVERY 4 WEEKS)
     Route: 042
     Dates: start: 20130827, end: 20130831
  4. EVOLTRA [Suspect]
     Indication: B-CELL LYMPHOMA
     Dosage: 38MG/M2/DAY(DAY1-5, EVERY 4 WEEKS)
     Route: 042
     Dates: start: 20130827, end: 20130831
  5. ETOPOSIDE [Concomitant]
     Indication: B-CELL LYMPHOMA
     Dosage: 40 MG/M2/DAY (DAY 1-5, EVERY 4 WEEKS)
     Route: 042
     Dates: start: 20130926, end: 20130930
  6. ETOPOSIDE [Concomitant]
     Indication: B-CELL LYMPHOMA
     Dosage: 40 MG/M2/DAY (DAY 1-5, EVERY 4 WEEKS)
     Route: 042
     Dates: start: 20130827, end: 20130831
  7. ENDOXAN [Concomitant]
     Indication: B-CELL LYMPHOMA
     Dosage: 100 MG/M2/DAY (DAY 1-5, EVERY 4 WEEKS)
     Route: 042
     Dates: start: 20130827, end: 20130831
  8. ENDOXAN [Concomitant]
     Indication: B-CELL LYMPHOMA
     Dosage: 100 MG/M2/DAY (DAY 1-5, EVERY 4 WEEKS)
     Route: 042
     Dates: start: 20130926, end: 20130930
  9. METHOTREXATE [Concomitant]
     Indication: B-CELL LYMPHOMA
     Dosage: 10 MG/BODY/DAY (DAY1, EVERY 4 WEEKS) M.Y DOSE:10 UNIT(S)
     Dates: start: 20130926, end: 20130926
  10. METHOTREXATE [Concomitant]
     Indication: B-CELL LYMPHOMA
     Dosage: 10 MG/BODY/DAY (DAY1, EVERY 4 WEEKS) M.Y DOSE:10 UNIT(S)
     Dates: start: 20130827, end: 20130827
  11. CYLOCIDE [Concomitant]
     Indication: B-CELL LYMPHOMA
     Dosage: 25 MG/BODY/DAY (DAY 1, EVERY 4 WEEKS) M.Y DOSE:25 UNIT(S)
     Dates: start: 20130827, end: 20130827
  12. CYLOCIDE [Concomitant]
     Indication: B-CELL LYMPHOMA
     Dosage: 25 MG/BODY/DAY (DAY 1, EVERY 4 WEEKS) M.Y DOSE:25 UNIT(S)
     Dates: start: 20130926, end: 20130926
  13. HYDROCORTONE [Concomitant]
     Indication: B-CELL LYMPHOMA
     Dosage: 20 MG/BODY/DAY (DAY 1, EVERY 4 WEEKS) M.Y DOSE:20 UNIT(S)
     Dates: start: 20130827, end: 20130827
  14. HYDROCORTONE [Concomitant]
     Indication: B-CELL LYMPHOMA
     Dosage: 20 MG/BODY/DAY (DAY 1, EVERY 4 WEEKS) M.Y DOSE:20 UNIT(S)
     Dates: start: 20130926, end: 20130926

REACTIONS (6)
  - Hepatic function abnormal [Recovering/Resolving]
  - Platelet count decreased [Recovered/Resolved]
  - Anaemia [Recovered/Resolved]
  - Respiratory syncytial virus infection [Recovered/Resolved]
  - Respiratory syncytial virus infection [Not Recovered/Not Resolved]
  - Acute respiratory distress syndrome [Fatal]
